FAERS Safety Report 6830648-6 (Version None)
Quarter: 2010Q3

REPORT INFORMATION
  Report Type: 
  Country: None (occurrence: None)
  Receive Date: 20100712
  Receipt Date: 20100630
  Transmission Date: 20110219
  Serious: No
  Sender: FDA-Public Use
  Company Number: DE-JNJFOC-20100608324

PATIENT
  Sex: Male
  Weight: 35 kg

DRUGS (4)
  1. DURAGESIC-100 [Suspect]
     Indication: NEURALGIA
     Route: 062
  2. MORPHINE [Concomitant]
     Dosage: AT LEAST 3 TIMES A DAY
     Route: 065
  3. METAMIZOL [Concomitant]
     Route: 065
  4. ANTICONVULSANTS, NOS [Concomitant]
     Route: 065

REACTIONS (1)
  - DRUG INEFFECTIVE [None]
